FAERS Safety Report 23184558 (Version 1)
Quarter: 2023Q4

REPORT INFORMATION
  Report Type: Spontaneous
  Country: TR (occurrence: TR)
  Receive Date: 20231115
  Receipt Date: 20231115
  Transmission Date: 20240109
  Serious: Yes (Other)
  Sender: FDA-Public Use
  Company Number: TR-002147023-NVSC2023TR240289

PATIENT
  Age: 27 Year
  Sex: Male

DRUGS (1)
  1. ILARIS [Suspect]
     Active Substance: CANAKINUMAB
     Indication: Familial mediterranean fever
     Dosage: 1 DOSAGE FORM, Q3MO
     Route: 065

REACTIONS (4)
  - Condition aggravated [Recovered/Resolved]
  - Panic reaction [Unknown]
  - Product supply issue [Unknown]
  - Off label use [Unknown]
